FAERS Safety Report 5070281-2 (Version None)
Quarter: 2006Q3

REPORT INFORMATION
  Report Type: 
  Country: None (occurrence: None)
  Receive Date: 20060731
  Receipt Date: 20060718
  Transmission Date: 20061208
  Serious: Yes (Hospitalization)
  Sender: FDA-Public Use
  Company Number: OMPQ-NO-0607S-1237

PATIENT
  Age: 49 Year
  Sex: Female

DRUGS (6)
  1. OMNIPAQUE 140 [Suspect]
     Indication: RENAL DISORDER
     Dosage: SINGLE DOSE, I.V.
     Route: 042
     Dates: start: 20060601, end: 20060601
  2. HYDROCHLOROTHIAZIDE [Concomitant]
  3. ATENOLOL [Concomitant]
  4. RAMIPRIL [Concomitant]
  5. AMLODIPINE [Concomitant]
  6. CANDESARTAN CILEXETIL [Concomitant]

REACTIONS (3)
  - HYPERTENSION [None]
  - MALAISE [None]
  - POST PROCEDURAL COMPLICATION [None]
